FAERS Safety Report 13151653 (Version 2)
Quarter: 2017Q1

REPORT INFORMATION
  Report Type: Spontaneous
  Country: AM (occurrence: AM)
  Receive Date: 20170125
  Receipt Date: 20170131
  Transmission Date: 20170428
  Serious: Yes (Other)
  Sender: FDA-Public Use
  Company Number: AM-JNJFOC-20170121014

PATIENT
  Age: 55 Year
  Sex: Male

DRUGS (9)
  1. BEDAQUILINE [Suspect]
     Active Substance: BEDAQUILINE
     Indication: PULMONARY TUBERCULOSIS
     Route: 048
     Dates: start: 20150731, end: 20160111
  2. VITAMIN B6 [Concomitant]
     Active Substance: PYRIDOXINE HYDROCHLORIDE
     Route: 065
  3. LINEZOLID. [Suspect]
     Active Substance: LINEZOLID
     Indication: PULMONARY TUBERCULOSIS
     Dosage: 600 UNSPECIFIED UNIT
     Route: 065
     Dates: start: 20150731
  4. CYCLOSERINE. [Suspect]
     Active Substance: CYCLOSERINE
     Indication: PULMONARY TUBERCULOSIS
     Dosage: 750 UNSPECIFIED UNIT
     Route: 065
     Dates: start: 20150731
  5. AMOXICILLIN/CLAVULANIC ACID [Suspect]
     Active Substance: AMOXICILLIN\CLAVULANIC ACID
     Indication: PULMONARY TUBERCULOSIS
     Dosage: 2000 UNSPECIFIED UNIT
     Route: 065
     Dates: start: 20150908
  6. CLOFAZIMINE [Suspect]
     Active Substance: CLOFAZIMINE
     Indication: PULMONARY TUBERCULOSIS
     Dosage: 200 UNSPECIFIED UNIT
     Route: 065
     Dates: start: 20150731, end: 20160501
  7. PARA-AMINOSALICYLIC ACID [Suspect]
     Active Substance: AMINOSALICYLIC ACID
     Indication: PULMONARY TUBERCULOSIS
     Dosage: 8000 UNSPECIFIED UNIT
     Route: 065
     Dates: start: 20150731, end: 20160129
  8. CAPREOMYCIN [Suspect]
     Active Substance: CAPREOMYCIN
     Indication: PULMONARY TUBERCULOSIS
     Dosage: 1000 UNSPECIFIED UNIT
     Route: 065
     Dates: start: 20150731
  9. IMIPENEM [Suspect]
     Active Substance: IMIPENEM
     Indication: PULMONARY TUBERCULOSIS
     Dosage: 2000 UNSPECIFIED UNIT
     Route: 065
     Dates: start: 20150908

REACTIONS (1)
  - Pancoast^s tumour [Not Recovered/Not Resolved]

NARRATIVE: CASE EVENT DATE: 20170113
